FAERS Safety Report 6719013-X (Version None)
Quarter: 2010Q2

REPORT INFORMATION
  Report Type: 
  Country: None (occurrence: None)
  Receive Date: 20100511
  Receipt Date: 20100427
  Transmission Date: 20101027
  Serious: Yes (Hospitalization)
  Sender: FDA-Public Use
  Company Number: JP-RANBAXY-2010RR-33638

PATIENT
  Age: 8 Month
  Sex: Female

DRUGS (9)
  1. PHENOBARBITAL [Suspect]
     Indication: EPILEPSY
     Dosage: 130 MG, UNK
     Route: 048
  2. PHENOBARBITAL [Suspect]
     Dosage: 150 MG, UNK
  3. PHENOBARBITAL [Suspect]
     Dosage: 15-20 MG/KG/DAY
     Route: 054
  4. PHENOBARBITAL [Suspect]
     Dosage: 25 MG, UNK
     Route: 054
  5. PHENYTOIN [Concomitant]
     Route: 042
  6. MIDAZOLAM HCL [Concomitant]
  7. LIDOCAINE [Concomitant]
  8. VALPROIC ACID [Concomitant]
  9. PHENOBARBITAL [Concomitant]
     Dosage: 60 MG, UNK

REACTIONS (1)
  - COMA [None]
